FAERS Safety Report 5085295-6 (Version None)
Quarter: 2006Q3

REPORT INFORMATION
  Report Type: 
  Country: None (occurrence: None)
  Receive Date: 20060817
  Receipt Date: 20060804
  Transmission Date: 20061208
  Serious: Yes (Hospitalization, Other)
  Sender: FDA-Public Use
  Company Number: 2005098954

PATIENT
  Age: 23 Year
  Sex: Male
  Weight: 97.977 kg

DRUGS (1)
  1. ZIPRASIDONE HCL [Suspect]
     Indication: SCHIZOPHRENIA
     Dosage: 180 MG (60 MG), ORAL
     Route: 048
     Dates: start: 20050612, end: 20050703

REACTIONS (3)
  - DELUSION [None]
  - PRIAPISM [None]
  - THERAPY NON-RESPONDER [None]
